FAERS Safety Report 17435251 (Version 4)
Quarter: 2020Q2

REPORT INFORMATION
  Report Type: Report from Study
  Country: KP (occurrence: KR)
  Receive Date: 20200219
  Receipt Date: 20200429
  Transmission Date: 20200713
  Serious: Yes (Hospitalization)
  Sender: FDA-Public Use
  Company Number: KP-CLOVIS ONCOLOGY-CLO-2020-000230

PATIENT

DRUGS (8)
  1. NIVOLUMAB [Suspect]
     Active Substance: NIVOLUMAB
     Indication: MALIGNANT PERITONEAL NEOPLASM
  2. ESOMEZOL                           /01479302/ [Concomitant]
     Indication: GASTRITIS
     Dosage: UNK
     Dates: start: 20200130, end: 20200205
  3. ULTRACET [Concomitant]
     Active Substance: ACETAMINOPHEN\TRAMADOL HYDROCHLORIDE
     Indication: NEURALGIA
     Dosage: UNK
     Dates: start: 20200130, end: 20200205
  4. RUCAPARIB [Suspect]
     Active Substance: RUCAPARIB
     Indication: MALIGNANT PERITONEAL NEOPLASM
     Dosage: 600 MG, BID
     Route: 048
     Dates: start: 20200115, end: 20200205
  5. NEUROTIN                           /01003001/ [Concomitant]
     Active Substance: GABAPENTIN
     Indication: NEUROPATHY PERIPHERAL
     Dosage: UNK
     Dates: start: 20190604, end: 20200205
  6. MAGO                               /07349401/ [Concomitant]
     Indication: CONSTIPATION
     Dosage: UNK
     Dates: start: 20191029, end: 20200205
  7. VESICARE [Concomitant]
     Active Substance: SOLIFENACIN SUCCINATE
     Indication: HYPERTONIC BLADDER
     Dosage: UNK
     Dates: start: 20191113
  8. BOLGRE [Concomitant]
     Indication: IRON DEFICIENCY
     Dosage: UNK
     Dates: start: 20191109, end: 20200205

REACTIONS (1)
  - Pancytopenia [Recovered/Resolved]

NARRATIVE: CASE EVENT DATE: 20200205
